FAERS Safety Report 5062567-2 (Version None)
Quarter: 2006Q3

REPORT INFORMATION
  Report Type: 
  Country: None (occurrence: None)
  Receive Date: 20060721
  Receipt Date: 20060712
  Transmission Date: 20061208
  Serious: Yes (Disabling, Other)
  Sender: FDA-Public Use
  Company Number: 2006-07-0423

PATIENT
  Age: 52 Year
  Sex: Male
  Weight: 99 kg

DRUGS (1)
  1. PEG-INTRON [Suspect]
     Indication: HEPATITIS C
     Dosage: 180 MCG QW SUBCUTANEOUS
     Route: 058
     Dates: start: 20060104, end: 20060701

REACTIONS (1)
  - CATARACT [None]
